FAERS Safety Report 5872082-1 (Version None)
Quarter: 2008Q3

REPORT INFORMATION
  Report Type: 
  Country: None (occurrence: None)
  Receive Date: 20080905
  Receipt Date: 20080829
  Transmission Date: 20090109
  Serious: Yes (Hospitalization)
  Sender: FDA-Public Use
  Company Number: A0744564A

PATIENT
  Age: 45 Year
  Sex: Female
  Weight: 81.4 kg

DRUGS (5)
  1. AVANDIA [Suspect]
     Route: 048
     Dates: start: 20020101, end: 20061201
  2. ATENOLOL [Concomitant]
  3. PRAVACHOL [Concomitant]
  4. ZOCOR [Concomitant]
  5. ZOLOFT [Concomitant]

REACTIONS (3)
  - CHEST DISCOMFORT [None]
  - DYSPNOEA [None]
  - MYOCARDIAL INFARCTION [None]
